FAERS Safety Report 13863392 (Version 10)
Quarter: 2020Q3

REPORT INFORMATION
  Report Type: Spontaneous
  Country: US (occurrence: US)
  Receive Date: 20170814
  Receipt Date: 20200710
  Transmission Date: 20201102
  Serious: Yes (Other)
  Sender: FDA-Public Use
  Company Number: US-PFIZER INC-2017349552

PATIENT
  Age: 57 Year
  Sex: Female
  Weight: 52 kg

DRUGS (6)
  1. DEPO?ESTRADIOL [Concomitant]
     Active Substance: ESTRADIOL CYPIONATE
     Indication: HORMONE LEVEL ABNORMAL
     Dosage: 2 UNK, UNK (2CC OR SOMETHING IN HER LEG MUSCLE)
     Route: 030
     Dates: start: 1981
  2. LYRICA [Suspect]
     Active Substance: PREGABALIN
     Indication: NEUROPATHY PERIPHERAL
     Dosage: 300 MG, 2X/DAY
     Route: 048
  3. LYRICA [Suspect]
     Active Substance: PREGABALIN
     Indication: DIABETES MELLITUS
     Dosage: 300 MG, 2X/DAY
     Route: 048
  4. LYRICA [Suspect]
     Active Substance: PREGABALIN
     Indication: NECK PAIN
     Dosage: 300 MG, 2X/DAY
     Route: 048
  5. LYRICA [Suspect]
     Active Substance: PREGABALIN
     Indication: BACK PAIN
     Dosage: 300 MG, 2X/DAY
     Route: 048
  6. LYRICA [Suspect]
     Active Substance: PREGABALIN
     Indication: NERVE COMPRESSION
     Dosage: 300 MG, 2X/DAY

REACTIONS (9)
  - Seizure [Unknown]
  - Therapeutic product effect incomplete [Not Recovered/Not Resolved]
  - Movement disorder [Unknown]
  - Skeletal injury [Unknown]
  - Pain [Not Recovered/Not Resolved]
  - Fibromyalgia [Unknown]
  - Vascular pain [Unknown]
  - Neuralgia [Unknown]
  - Ligament sprain [Unknown]
